FAERS Safety Report 4909915-9 (Version None)
Quarter: 2006Q1

REPORT INFORMATION
  Report Type: 
  Country: None (occurrence: None)
  Receive Date: 20060213
  Receipt Date: 20060203
  Transmission Date: 20060701
  Serious: Yes (Hospitalization)
  Sender: FDA-Public Use
  Company Number: 2006UW02025

PATIENT
  Age: 82 Year
  Sex: Male

DRUGS (5)
  1. NEXIUM [Suspect]
     Indication: DYSPEPSIA
     Route: 048
  2. TUMS [Concomitant]
  3. ROLAIDS [Concomitant]
  4. LOSEC [Concomitant]
  5. LANSOPRAZOLE [Concomitant]

REACTIONS (6)
  - BREAST SWELLING [None]
  - HERNIA [None]
  - MACULAR DEGENERATION [None]
  - PARAESTHESIA OF GENITAL MALE [None]
  - PENILE HAEMORRHAGE [None]
  - PENILE PAIN [None]
